FAERS Safety Report 4998027-4 (Version None)
Quarter: 2006Q2

REPORT INFORMATION
  Report Type: 
  Country: None (occurrence: None)
  Receive Date: 20060508
  Receipt Date: 20060426
  Transmission Date: 20061013
  Serious: No
  Sender: FDA-Public Use
  Company Number: 06H-163-0307895-00

PATIENT

DRUGS (1)
  1. BACTERIOSTATIC SODIUM CHLORIDE 0.9% [Suspect]
     Indication: INJECTION
     Dosage: SUBCUTANEOUS
     Route: 058
     Dates: start: 20060401, end: 20060401

REACTIONS (1)
  - ANAPHYLACTIC REACTION [None]
